FAERS Safety Report 23354324 (Version 1)
Quarter: 2024Q1

REPORT INFORMATION
  Report Type: Spontaneous
  Country: DE (occurrence: None)
  Receive Date: 20240101
  Receipt Date: 20240101
  Transmission Date: 20240410
  Serious: Yes (Other)
  Sender: FDA-Public Use
  Company Number: DE-ROCHE-3480190

PATIENT
  Sex: Female

DRUGS (1)
  1. OCREVUS [Suspect]
     Active Substance: OCRELIZUMAB
     Indication: Multiple sclerosis
     Route: 065

REACTIONS (5)
  - Walking aid user [Unknown]
  - Bone pain [Recovered/Resolved]
  - Gait disturbance [Unknown]
  - Multiple sclerosis relapse [Unknown]
  - Disease progression [Unknown]
